FAERS Safety Report 18118530 (Version 2)
Quarter: 2020Q3

REPORT INFORMATION
  Report Type: Report from Study
  Country: BR (occurrence: BR)
  Receive Date: 20200806
  Receipt Date: 20200811
  Transmission Date: 20201103
  Serious: Yes (Hospitalization)
  Sender: FDA-Public Use
  Company Number: BR-SA-2020SA202167

PATIENT

DRUGS (16)
  1. AEROLIN [Concomitant]
     Active Substance: ALBUTEROL
     Indication: PROPHYLAXIS
     Dosage: 100 UG, Q4H
     Route: 055
     Dates: start: 20200618, end: 20200706
  2. FENTANYL. [Concomitant]
     Active Substance: FENTANYL
     Indication: PROPHYLAXIS
     Dosage: 250 UG, PRN
     Route: 042
     Dates: start: 20200615, end: 20200624
  3. AZITHROMYCIN ANHYDROUS. [Concomitant]
     Active Substance: AZITHROMYCIN ANHYDROUS
     Indication: PROPHYLAXIS
     Dosage: 500 MG, QD
     Route: 048
     Dates: start: 20200610, end: 20200620
  4. SARILUMAB [Suspect]
     Active Substance: SARILUMAB
     Dosage: INTENDED DOSE: 1 BAG; INFUSION RATE 100 ML/H, 1X
     Route: 042
     Dates: start: 20200617, end: 20200617
  5. CEFTRIAXONE. [Concomitant]
     Active Substance: CEFTRIAXONE
     Indication: PROPHYLAXIS
     Dosage: 2 G, QD
     Route: 042
     Dates: start: 20200610, end: 20200620
  6. VITAMIN D [VITAMIN D NOS] [Concomitant]
     Active Substance: VITAMIN D NOS
     Indication: PROPHYLAXIS
     Dosage: 400 IU, QD
     Route: 050
     Dates: start: 20200618, end: 20200706
  7. ESMERON [Concomitant]
     Active Substance: ROCURONIUM BROMIDE
     Indication: PROPHYLAXIS
     Dosage: 50 MG, PRN
     Route: 042
     Dates: start: 20200615, end: 20200622
  8. PANTOPRAZOLE [Concomitant]
     Active Substance: PANTOPRAZOLE
     Indication: PROPHYLAXIS
     Dosage: 40 MG, QD
     Route: 042
     Dates: start: 20200611, end: 20200706
  9. SARILUMAB [Suspect]
     Active Substance: SARILUMAB
     Indication: COVID-19
     Dosage: INTENDED DOSE: 1 BAG; INFUSION RATE 100 ML/H, 1X
     Route: 042
     Dates: start: 20200616, end: 20200616
  10. METHIMAZOLE. [Concomitant]
     Active Substance: METHIMAZOLE
     Indication: PROPHYLAXIS
     Dosage: 1 G, PRN
     Route: 042
     Dates: start: 20200610, end: 20200706
  11. BRIDION [Concomitant]
     Active Substance: SUGAMMADEX
     Indication: PROPHYLAXIS
     Dosage: 200 UG, PRN
     Route: 042
     Dates: start: 20200615, end: 20200622
  12. ONDANSETRON [Concomitant]
     Active Substance: ONDANSETRON
     Indication: PROPHYLAXIS
     Dosage: 4 MG, PRN
     Route: 042
     Dates: start: 20200610, end: 20200706
  13. PROPOFOL. [Concomitant]
     Active Substance: PROPOFOL
     Indication: PRE-EXISTING DISEASE
     Dosage: 0.001 DF (BOTTLE), PRN
     Route: 042
     Dates: start: 20200615, end: 20200624
  14. NOREPINEPHRINE. [Concomitant]
     Active Substance: NOREPINEPHRINE
     Indication: PRE-EXISTING DISEASE
     Dosage: 4 MG, PRN
     Route: 042
     Dates: start: 20200615, end: 20200620
  15. FUROSEMIDE. [Concomitant]
     Active Substance: FUROSEMIDE
     Indication: PROPHYLAXIS
     Dosage: 20 MG, BID
     Route: 042
     Dates: start: 20200618, end: 20200622
  16. MIDAZOLAM. [Concomitant]
     Active Substance: MIDAZOLAM
     Indication: PROPHYLAXIS
     Dosage: 100 MG, PRN
     Route: 042
     Dates: start: 20200615, end: 20200622

REACTIONS (1)
  - Tracheobronchitis [Recovered/Resolved]

NARRATIVE: CASE EVENT DATE: 20200620
